FAERS Safety Report 25286926 (Version 1)
Quarter: 2025Q2

REPORT INFORMATION
  Report Type: Spontaneous
  Country: CN (occurrence: CN)
  Receive Date: 20250509
  Receipt Date: 20250509
  Transmission Date: 20250716
  Serious: Yes (Other)
  Sender: JIANGSU HANSOH PHARMACEUTICAL
  Company Number: CN-Jiangsu Hansoh Pharmaceutical Co., Ltd-2176429

PATIENT
  Age: 58 Year
  Sex: Male
  Weight: 74 kg

DRUGS (2)
  1. VINORELBINE TARTRATE [Suspect]
     Active Substance: VINORELBINE TARTRATE
     Indication: Squamous cell carcinoma of lung
     Dates: start: 20250314, end: 20250321
  2. CISPLATIN [Suspect]
     Active Substance: CISPLATIN
     Dates: start: 20250314, end: 20250316

REACTIONS (4)
  - Abdominal pain [Recovering/Resolving]
  - Abdominal discomfort [Recovering/Resolving]
  - Myelosuppression [Recovered/Resolved with Sequelae]
  - Dysphagia [Recovering/Resolving]

NARRATIVE: CASE EVENT DATE: 20250317
